FAERS Safety Report 7598167-X (Version None)
Quarter: 2011Q3

REPORT INFORMATION
  Report Type: 
  Country: None (occurrence: None)
  Receive Date: 20110708
  Receipt Date: 20110624
  Transmission Date: 20111222
  Serious: Yes (Other)
  Sender: FDA-Public Use
  Company Number: NL-GENENTECH-309131

PATIENT
  Sex: Male

DRUGS (1)
  1. XOLAIR [Suspect]
     Indication: ASTHMA
     Dosage: UNK
     Route: 058

REACTIONS (11)
  - ASTHMA EXERCISE INDUCED [None]
  - PSYCHOMOTOR HYPERACTIVITY [None]
  - ASPERGILLOSIS [None]
  - UPPER AIRWAY OBSTRUCTION [None]
  - INSOMNIA [None]
  - CONDITION AGGRAVATED [None]
  - CHEST PAIN [None]
  - FATIGUE [None]
  - ASTHMA [None]
  - LUNG DISORDER [None]
  - HYPERSENSITIVITY [None]
